FAERS Safety Report 6795750-6 (Version None)
Quarter: 2010Q2

REPORT INFORMATION
  Report Type: 
  Country: None (occurrence: None)
  Receive Date: 20100625
  Receipt Date: 20100616
  Transmission Date: 20101027
  Serious: Yes (Other)
  Sender: FDA-Public Use
  Company Number: SE-JNJFOC-20090807270

PATIENT
  Age: 39 Year
  Sex: Female

DRUGS (6)
  1. REMICADE [Suspect]
     Indication: COLITIS ULCERATIVE
     Route: 042
  2. REMICADE [Suspect]
     Route: 042
  3. TIBINIDE [Concomitant]
  4. AZATHIOPRINE [Concomitant]
  5. SALAZOPYRIN [Concomitant]
  6. LEVOTHYROXINE SODIUM [Concomitant]

REACTIONS (4)
  - HYPERSENSITIVITY [None]
  - PUSTULAR PSORIASIS [None]
  - RASH ERYTHEMATOUS [None]
  - SKIN EXFOLIATION [None]
